FAERS Safety Report 23915439 (Version 1)
Quarter: 2024Q2

REPORT INFORMATION
  Report Type: Spontaneous
  Country: US (occurrence: US)
  Receive Date: 20240529
  Receipt Date: 20240529
  Transmission Date: 20240716
  Serious: No
  Sender: FDA-Public Use
  Company Number: US-PFIZER INC-PV202400069524

PATIENT
  Age: 68 Year
  Sex: Male

DRUGS (5)
  1. DAYPRO [Suspect]
     Active Substance: OXAPROZIN
     Dosage: UNK
  2. GLIPIZIDE [Concomitant]
     Active Substance: GLIPIZIDE
  3. ELIQUIS [Concomitant]
     Active Substance: APIXABAN
  4. MONTELUKAST [Concomitant]
     Active Substance: MONTELUKAST SODIUM
  5. PRILOSEC [Concomitant]
     Active Substance: OMEPRAZOLE MAGNESIUM

REACTIONS (2)
  - Rash erythematous [Unknown]
  - Pruritus [Unknown]
